FAERS Safety Report 23445686 (Version 1)
Quarter: 2024Q1

REPORT INFORMATION
  Report Type: Other
  Country: US (occurrence: None)
  Receive Date: 20240126
  Receipt Date: 20240126
  Transmission Date: 20240409
  Serious: Yes (Other)
  Sender: FDA-Public Use
  Company Number: US-ROCHE-3427116

PATIENT
  Age: 67 Year
  Sex: Female

DRUGS (14)
  1. ACTEMRA [Suspect]
     Active Substance: TOCILIZUMAB
     Indication: Rheumatoid arthritis
     Route: 058
     Dates: start: 202010
  2. RITUXAN [Suspect]
     Active Substance: RITUXIMAB
     Indication: Rheumatoid arthritis
     Route: 042
  3. ACTEMRA [Suspect]
     Active Substance: TOCILIZUMAB
     Indication: Rheumatoid arthritis
     Route: 058
  4. ACTEMRA [Suspect]
     Active Substance: TOCILIZUMAB
  5. XELJANZ [Concomitant]
     Active Substance: TOFACITINIB CITRATE
     Indication: Rheumatoid arthritis
     Route: 048
  6. PREDNISONE [Concomitant]
     Active Substance: PREDNISONE
     Indication: Rheumatoid arthritis
     Dosage: TAPER SCHEDULE, 30MG FOR 3 DAYS, THEN 20MG, THEN 10MG
     Route: 048
     Dates: start: 202308, end: 202308
  7. PREDNISONE [Concomitant]
     Active Substance: PREDNISONE
     Indication: Condition aggravated
     Dosage: TAPER SCHEDULE, 30MG FOR 3 DAYS, THEN 20MG, THEN 10MG
     Route: 048
     Dates: start: 202308, end: 202308
  8. PREDNISONE [Concomitant]
     Active Substance: PREDNISONE
     Dosage: TAPER SCHEDULE, 30MG FOR 3 DAYS, THEN 20MG, THEN 10MG
     Route: 048
     Dates: start: 2023, end: 202308
  9. PREDNISONE [Concomitant]
     Active Substance: PREDNISONE
     Route: 048
     Dates: start: 2023, end: 202307
  10. PREDNISONE [Concomitant]
     Active Substance: PREDNISONE
     Route: 048
  11. PREDNISONE [Concomitant]
     Active Substance: PREDNISONE
     Dosage: ADDED TO RITUXAN
     Route: 042
  12. ATORVASTATIN [Concomitant]
     Active Substance: ATORVASTATIN
     Indication: Blood cholesterol
  13. ANASTROZOLE [Concomitant]
     Active Substance: ANASTROZOLE
     Indication: Breast cancer
     Route: 048
  14. EBRT (EXTERNAL BEAM RADIATION THERAPY) [Concomitant]
     Indication: Breast cancer
     Dosage: DAILY FOR 5 DAYS
     Dates: start: 2021, end: 2021

REACTIONS (5)
  - Breast cancer [Recovering/Resolving]
  - Condition aggravated [Not Recovered/Not Resolved]
  - Spinal cord disorder [Not Recovered/Not Resolved]
  - Seizure [Recovered/Resolved]
  - Drug ineffective [Unknown]

NARRATIVE: CASE EVENT DATE: 20201001
